FAERS Safety Report 16249973 (Version 1)
Quarter: 2019Q2

REPORT INFORMATION
  Report Type: Spontaneous
  Country: US (occurrence: US)
  Receive Date: 20190429
  Receipt Date: 20190429
  Transmission Date: 20190711
  Serious: No
  Sender: FDA-Public Use
  Company Number: US-MYLANLABS-2019M1035428

PATIENT
  Sex: Male

DRUGS (1)
  1. FENTANYL TRANSDERMAL SYSTEM [Suspect]
     Active Substance: FENTANYL
     Indication: PAIN
     Dosage: CHANGED EVERT 72 HOUR
     Route: 062

REACTIONS (3)
  - Withdrawal syndrome [Recovered/Resolved]
  - Paraesthesia [Unknown]
  - Therapeutic product effect increased [Not Recovered/Not Resolved]
